FAERS Safety Report 6284863-3 (Version None)
Quarter: 2009Q3

REPORT INFORMATION
  Report Type: 
  Country: None (occurrence: None)
  Receive Date: 20090727
  Receipt Date: 20090714
  Transmission Date: 20100115
  Serious: Yes (Hospitalization)
  Sender: FDA-Public Use
  Company Number: A0798507A

PATIENT
  Sex: Male

DRUGS (1)
  1. ROSIGLITAZONE MALEATE [Suspect]
     Route: 048
     Dates: start: 20040101, end: 20060101

REACTIONS (3)
  - AORTIC DISORDER [None]
  - DEPENDENCE ON ENABLING MACHINE OR DEVICE [None]
  - RENAL IMPAIRMENT [None]
